FAERS Safety Report 5134532-8 (Version None)
Quarter: 2006Q4

REPORT INFORMATION
  Report Type: 
  Country: None (occurrence: None)
  Receive Date: 20061019
  Receipt Date: 20061004
  Transmission Date: 20070319
  Serious: Yes (Other)
  Sender: FDA-Public Use
  Company Number: US200610000839

PATIENT
  Age: 60 Year
  Sex: Female

DRUGS (2)
  1. HUMULIN N [Suspect]
     Indication: DIABETES MELLITUS
  2. HUMULIN N PEN (HUMULIN N PEN) PEN, DISPOSABLE [Concomitant]

REACTIONS (3)
  - BREAST CANCER FEMALE [None]
  - DIABETIC NEUROPATHY [None]
  - PHARMACEUTICAL PRODUCT COMPLAINT [None]
